FAERS Safety Report 16624517 (Version 1)
Quarter: 2019Q3

REPORT INFORMATION
  Report Type: Spontaneous
  Country: US (occurrence: US)
  Receive Date: 20190611
  Receipt Date: 20190611
  Transmission Date: 20191004
  Serious: No
  Sender: FDA-Public Use
  Company Number: None

PATIENT

DRUGS (1)
  1. SOFOSBUVIR / VELPATASVIR 400-100MG [Suspect]
     Active Substance: SOFOSBUVIR\VELPATASVIR
     Indication: HEPATITIS C
     Dates: start: 201905

REACTIONS (6)
  - Irritability [None]
  - Depression [None]
  - Abdominal discomfort [None]
  - Diarrhoea [None]
  - Decreased appetite [None]
  - Somnambulism [None]

NARRATIVE: CASE EVENT DATE: 20190611
